FAERS Safety Report 6883450-3 (Version None)
Quarter: 2010Q3

REPORT INFORMATION
  Report Type: 
  Country: None (occurrence: None)
  Receive Date: 20100727
  Receipt Date: 20100716
  Transmission Date: 20110219
  Serious: Yes (Hospitalization, Other)
  Sender: FDA-Public Use
  Company Number: 2010P1000371

PATIENT
  Age: 78 Year
  Sex: Male
  Weight: 84.369 kg

DRUGS (22)
  1. COLCRYS [Suspect]
     Indication: GOUT
     Dosage: 06MG; 0.6MG, BID, GT
     Dates: end: 20080202
  2. COLCRYS [Suspect]
     Indication: GOUT
     Dosage: 06MG; 0.6MG, BID, GT
     Dates: start: 20080229, end: 20080305
  3. HEPARIN SODIUM [Suspect]
     Indication: ATRIAL FIBRILLATION
     Dosage: 5000 UNITS; X1; IVBOL
     Route: 040
     Dates: start: 20080202, end: 20080202
  4. HEPARIN SODIUM [Suspect]
     Indication: THROMBOSIS PROPHYLAXIS
     Dosage: 5000 UNITS; X1; IVBOL
     Route: 040
     Dates: start: 20080202, end: 20080202
  5. HEPARIN SODIUM [Suspect]
     Indication: ATRIAL FIBRILLATION
     Dosage: , 200 UNITS; BID; IV, 200 UNITS; PRN; IV
     Route: 042
     Dates: start: 20080302, end: 20080306
  6. HEPARIN SODIUM [Suspect]
     Indication: THROMBOSIS PROPHYLAXIS
     Dosage: , 200 UNITS; BID; IV, 200 UNITS; PRN; IV
     Route: 042
     Dates: start: 20080302, end: 20080306
  7. HEPARIN SODIUM [Suspect]
     Indication: ATRIAL FIBRILLATION
     Dosage: , 200 UNITS; BID; IV, 200 UNITS; PRN; IV
     Route: 042
     Dates: start: 20080302, end: 20080306
  8. HEPARIN SODIUM [Suspect]
     Indication: THROMBOSIS PROPHYLAXIS
     Dosage: , 200 UNITS; BID; IV, 200 UNITS; PRN; IV
     Route: 042
     Dates: start: 20080302, end: 20080306
  9. HEPARIN SODIUM [Suspect]
     Indication: ATRIAL FIBRILLATION
     Dosage: 1000 UNITS; QH; IV, 5000 UNITS; IV, 25000 UNITS; X1; IV, 2000 UNITS; IV,
     Route: 042
     Dates: start: 20080202, end: 20080202
  10. HEPARIN SODIUM [Suspect]
     Indication: THROMBOSIS PROPHYLAXIS
     Dosage: 1000 UNITS; QH; IV, 5000 UNITS; IV, 25000 UNITS; X1; IV, 2000 UNITS; IV,
     Route: 042
     Dates: start: 20080202, end: 20080202
  11. HEPARIN SODIUM [Suspect]
     Indication: ATRIAL FIBRILLATION
     Dosage: 1000 UNITS; QH; IV, 5000 UNITS; IV, 25000 UNITS; X1; IV, 2000 UNITS; IV,
     Route: 042
     Dates: start: 20080202, end: 20080210
  12. HEPARIN SODIUM [Suspect]
     Indication: THROMBOSIS PROPHYLAXIS
     Dosage: 1000 UNITS; QH; IV, 5000 UNITS; IV, 25000 UNITS; X1; IV, 2000 UNITS; IV,
     Route: 042
     Dates: start: 20080202, end: 20080210
  13. ALTACE [Concomitant]
  14. WARFARIN SODIUM [Concomitant]
  15. XALATAN [Concomitant]
  16. ATIVAN [Concomitant]
  17. VITAMIN B COMPLEX CAP [Concomitant]
  18. CELEBREX [Concomitant]
  19. MULTI-VITAMIN [Concomitant]
  20. NORVASC [Concomitant]
  21. NEXIUM [Concomitant]
  22. PREV MEDS [Concomitant]

REACTIONS (36)
  - ABDOMINAL PAIN [None]
  - AGITATION [None]
  - ANAEMIA [None]
  - BACK PAIN [None]
  - CANDIDA TEST POSITIVE [None]
  - CONFUSIONAL STATE [None]
  - CRITICAL ILLNESS POLYNEUROPATHY [None]
  - DECREASED APPETITE [None]
  - DEEP VEIN THROMBOSIS [None]
  - DEHYDRATION [None]
  - DELIRIUM [None]
  - DELIRIUM TREMENS [None]
  - DYSPHAGIA [None]
  - DYSPNOEA [None]
  - DYSSTASIA [None]
  - GAIT DISTURBANCE [None]
  - HAEMORRHAGE [None]
  - HALLUCINATION, VISUAL [None]
  - HIATUS HERNIA [None]
  - HYPOTENSION [None]
  - HYPOXIA [None]
  - MENTAL STATUS CHANGES [None]
  - MYOCLONUS [None]
  - MYOPATHY TOXIC [None]
  - PLATELET COUNT INCREASED [None]
  - PNEUMONIA ASPIRATION [None]
  - PULMONARY HYPERTENSION [None]
  - RENAL FAILURE ACUTE [None]
  - RENAL TUBULAR NECROSIS [None]
  - RESPIRATORY DISTRESS [None]
  - RETROPERITONEAL HAEMATOMA [None]
  - RIGHT VENTRICULAR HYPERTROPHY [None]
  - SEPSIS [None]
  - TREMOR [None]
  - UNRESPONSIVE TO STIMULI [None]
  - URINARY TRACT INFECTION FUNGAL [None]
